FAERS Safety Report 4787463-7 (Version None)
Quarter: 2005Q4

REPORT INFORMATION
  Report Type: 
  Country: None (occurrence: None)
  Receive Date: 20051003
  Receipt Date: 20050921
  Transmission Date: 20060501
  Serious: Yes (Hospitalization)
  Sender: FDA-Public Use
  Company Number: TPA2005A01089

PATIENT
  Sex: Female

DRUGS (2)
  1. ROZEREM [Suspect]
     Dosage: PER ORAL
     Route: 048
  2. EFFEXOR [Concomitant]

REACTIONS (1)
  - PANCREATITIS [None]
